FAERS Safety Report 9813160 (Version 1)
Quarter: 2014Q1

REPORT INFORMATION
  Report Type: Spontaneous
  Country: US (occurrence: US)
  Receive Date: 20140113
  Receipt Date: 20140113
  Transmission Date: 20141002
  Serious: Yes (Hospitalization)
  Sender: FDA-Public Use
  Company Number: US-B.I. PHARMACEUTICALS,INC./RIDGEFIELD-2014-BI-00956BP

PATIENT
  Age: 78 Year
  Sex: Male

DRUGS (8)
  1. DULCOLAX (BISACODYL) [Suspect]
     Indication: CONSTIPATION
     Dosage: 10 MG
     Route: 054
     Dates: start: 201312
  2. PROTONIX [Concomitant]
     Dosage: 40 MG
     Route: 048
     Dates: start: 201310
  3. PERCOCET [Concomitant]
     Indication: ARTHRALGIA
     Dosage: STRENGTH: 10/325 MG;
     Route: 048
     Dates: start: 201310
  4. WELLBUTRIN XL [Concomitant]
     Indication: DEPRESSION
     Dosage: 150 MG
     Route: 048
     Dates: start: 201310
  5. CORDARONE [Concomitant]
     Indication: ATRIAL FIBRILLATION
     Dosage: 200 MG
     Route: 048
     Dates: start: 2009
  6. CYMBALTA [Concomitant]
     Indication: DEPRESSION
     Dosage: 30 MG
     Route: 048
     Dates: start: 2011
  7. NEURONTIN [Concomitant]
     Indication: PAIN IN EXTREMITY
     Dosage: 2400 MG
     Route: 048
     Dates: start: 2010
  8. LANOXIN [Concomitant]
     Indication: ATRIAL FIBRILLATION
     Dosage: 0.125 MG
     Route: 048
     Dates: start: 2009

REACTIONS (4)
  - Nausea [Recovered/Resolved]
  - Megacolon [Recovered/Resolved]
  - Prescribed overdose [Recovered/Resolved]
  - Incorrect drug administration duration [Not Recovered/Not Resolved]
